FAERS Safety Report 9699312 (Version 1)
Quarter: 2013Q4

REPORT INFORMATION
  Report Type: Spontaneous
  Country: US (occurrence: US)
  Receive Date: 20131120
  Receipt Date: 20131120
  Transmission Date: 20140711
  Serious: No
  Sender: FDA-Public Use
  Company Number: US-GILEAD-2008-0015553

PATIENT
  Sex: Male
  Weight: 102.6 kg

DRUGS (15)
  1. LETAIRIS [Suspect]
     Indication: PULMONARY ARTERIAL HYPERTENSION
     Route: 048
     Dates: start: 20071025, end: 20080214
  2. OXYGEN [Concomitant]
     Route: 055
  3. COUMADIN [Concomitant]
     Route: 048
  4. FUROSEMIDE [Concomitant]
     Route: 048
  5. METOLAZONE [Concomitant]
     Route: 048
  6. SPIRONOLACTONE [Concomitant]
     Route: 048
  7. ISOSORBIDE [Concomitant]
     Route: 048
  8. COREG CR [Concomitant]
     Route: 048
  9. ASPIRIN [Concomitant]
     Route: 048
  10. PRAVASTATIN SODIUM [Concomitant]
     Route: 048
  11. HUMALOG [Concomitant]
     Route: 058
  12. LANTUS [Concomitant]
     Route: 058
  13. ALLOPURINOL [Concomitant]
     Route: 048
  14. OXYCODONE [Concomitant]
     Route: 048
  15. NEXIUM [Concomitant]
     Route: 048

REACTIONS (1)
  - Fluid retention [Unknown]
